FAERS Safety Report 14783258 (Version 2)
Quarter: 2019Q1

REPORT INFORMATION
  Report Type: Spontaneous
  Country: US (occurrence: US)
  Receive Date: 20180420
  Receipt Date: 20190116
  Transmission Date: 20190417
  Serious: No
  Sender: FDA-Public Use
  Company Number: US-PFIZER INC-2018161282

PATIENT
  Age: 43 Year
  Sex: Male

DRUGS (1)
  1. PRISTIQ EXTENDED-RELEASE [Suspect]
     Active Substance: DESVENLAFAXINE SUCCINATE
     Indication: BIPOLAR II DISORDER
     Dosage: 1 DF, DAILY (1 TABLET EVERY DAY AS DIRECTED)
     Route: 048

REACTIONS (3)
  - Depressed mood [Unknown]
  - Drug ineffective for unapproved indication [Unknown]
  - Mental disorder [Unknown]
